FAERS Safety Report 5389387-3 (Version None)
Quarter: 2007Q3

REPORT INFORMATION
  Report Type: 
  Country: None (occurrence: None)
  Receive Date: 20070713
  Receipt Date: 20070713
  Transmission Date: 20080115
  Serious: Yes (Death)
  Sender: FDA-Public Use
  Company Number: None

PATIENT
  Age: 57 Year
  Sex: Male
  Weight: 92.5338 kg

DRUGS (6)
  1. CUBICIN [Suspect]
     Indication: ENDOCARDITIS
     Dosage: 6MG/KG = 560MG Q24H IV, 6MG/KG
     Route: 042
     Dates: start: 20070228, end: 20070308
  2. CUBICIN [Suspect]
     Indication: STAPHYLOCOCCAL SEPSIS
     Dosage: 6MG/KG = 560MG Q24H IV, 6MG/KG
     Route: 042
     Dates: start: 20070228, end: 20070308
  3. CUBICIN [Suspect]
     Indication: THROMBOPHLEBITIS
     Dosage: 6MG/KG = 560MG Q24H IV, 6MG/KG
     Route: 042
     Dates: start: 20070228, end: 20070308
  4. CUBICIN [Suspect]
     Indication: ENDOCARDITIS
     Dosage: 6MG/KG = 560MG Q24H IV, 6MG/KG
     Route: 042
     Dates: start: 20070315, end: 20070412
  5. CUBICIN [Suspect]
     Indication: STAPHYLOCOCCAL SEPSIS
     Dosage: 6MG/KG = 560MG Q24H IV, 6MG/KG
     Route: 042
     Dates: start: 20070315, end: 20070412
  6. CUBICIN [Suspect]
     Indication: THROMBOPHLEBITIS
     Dosage: 6MG/KG = 560MG Q24H IV, 6MG/KG
     Route: 042
     Dates: start: 20070315, end: 20070412

REACTIONS (4)
  - ANTIMICROBIAL SUSCEPTIBILITY TEST RESISTANT [None]
  - DISEASE RECURRENCE [None]
  - ENDOCARDITIS [None]
  - STAPHYLOCOCCAL BACTERAEMIA [None]
